FAERS Safety Report 24196736 (Version 1)
Quarter: 2024Q3

REPORT INFORMATION
  Report Type: Spontaneous
  Country: CA (occurrence: CA)
  Receive Date: 20240810
  Receipt Date: 20240810
  Transmission Date: 20241017
  Serious: Yes (Other)
  Sender: CELLTRION
  Company Number: CA-PFIZER INC-202400124997

PATIENT

DRUGS (8)
  1. INFLECTRA [Suspect]
     Active Substance: INFLIXIMAB-DYYB
     Indication: Crohn^s disease
     Dosage: 400 MG, 0, 2, 6, THEN EVERY 8 WEEKS
     Route: 042
     Dates: start: 20170309, end: 20180906
  2. INFLECTRA [Suspect]
     Active Substance: INFLIXIMAB-DYYB
     Dosage: 500 MG, EVERY 8 WEEKS
     Route: 042
     Dates: start: 20181101, end: 20181101
  3. INFLECTRA [Suspect]
     Active Substance: INFLIXIMAB-DYYB
     Dosage: 900 MG, EVERY 8 WEEKS
     Route: 042
     Dates: start: 20181227, end: 20200903
  4. INFLECTRA [Suspect]
     Active Substance: INFLIXIMAB-DYYB
     Dosage: 500 MG, EVERY 8 WEEKS
     Route: 042
     Dates: start: 20201030
  5. INFLECTRA [Suspect]
     Active Substance: INFLIXIMAB-DYYB
     Dosage: 500 MG, EVERY 8 WEEKS
     Route: 042
     Dates: start: 20240321
  6. INFLECTRA [Suspect]
     Active Substance: INFLIXIMAB-DYYB
     Dosage: 500 MG, EVERY 8 WEEKS
     Route: 042
     Dates: start: 20240516
  7. INFLECTRA [Suspect]
     Active Substance: INFLIXIMAB-DYYB
     Dosage: 500 MG, AFTER 7 WEEKS AND 6 DAYS (PRESCRIBED EVERY 8 WEEKS)
     Route: 042
     Dates: start: 20240711
  8. IMURAN [Concomitant]
     Active Substance: AZATHIOPRINE
     Dosage: UNK

REACTIONS (3)
  - Large intestinal stenosis [Unknown]
  - Condition aggravated [Not Recovered/Not Resolved]
  - Off label use [Unknown]

NARRATIVE: CASE EVENT DATE: 20240516
